FAERS Safety Report 25740459 (Version 1)
Quarter: 2025Q3

REPORT INFORMATION
  Report Type: Spontaneous
  Country: US (occurrence: US)
  Receive Date: 20250829
  Receipt Date: 20250829
  Transmission Date: 20251020
  Serious: No
  Sender: LEADING PHARMA
  Company Number: US-LEADINGPHARMA-US-2025LEASPO00139

PATIENT
  Sex: Female

DRUGS (1)
  1. FUROSEMIDE [Suspect]
     Active Substance: FUROSEMIDE
     Indication: Oedema
     Route: 065

REACTIONS (1)
  - Adverse drug reaction [Unknown]
